FAERS Safety Report 6843970-4 (Version None)
Quarter: 2010Q3

REPORT INFORMATION
  Report Type: 
  Country: None (occurrence: None)
  Receive Date: 20100715
  Receipt Date: 20100706
  Transmission Date: 20110219
  Serious: Yes (Other)
  Sender: FDA-Public Use
  Company Number: GB-PFIZER INC-2010084331

PATIENT
  Age: 62 Year
  Sex: Female

DRUGS (3)
  1. CHAMPIX [Suspect]
     Dosage: 0.5 MG, 2X/DAY
     Route: 048
     Dates: start: 20100612, end: 20100616
  2. DICLOFENAC [Concomitant]
     Dosage: UNK
  3. GLUCOSAMINE [Concomitant]
     Dosage: UNK

REACTIONS (2)
  - FLUID RETENTION [None]
  - OEDEMA PERIPHERAL [None]
